FAERS Safety Report 8975997 (Version 1)
Quarter: 2012Q4

REPORT INFORMATION
  Report Type: 
  Country: IN (occurrence: IN)
  Receive Date: 20121219
  Receipt Date: 20121219
  Transmission Date: 20130627
  Serious: Yes (Other)
  Sender: FDA-Public Use
  Company Number: PHHY2012IN114728

PATIENT
  Age: 15 Year
  Sex: Male

DRUGS (6)
  1. ISONIAZID [Suspect]
     Indication: MENINGITIS TUBERCULOUS
     Dosage: 600 mg, QW3
  2. RIFAMPICIN [Concomitant]
     Indication: MENINGITIS TUBERCULOUS
     Dosage: 450 mg, QW3
  3. ETHAMBUTOL [Concomitant]
     Indication: MENINGITIS TUBERCULOUS
     Dosage: 1200 mg, QW3
  4. PYRAZINAMIDE [Concomitant]
     Indication: MENINGITIS TUBERCULOUS
     Dosage: 1500 mg, QW3
  5. CORTICOSTEROID NOS [Concomitant]
     Route: 048
  6. OFLOXACIN [Concomitant]
     Indication: MENINGITIS TUBERCULOUS

REACTIONS (6)
  - Papilloma [Unknown]
  - Lichenoid keratosis [Recovered/Resolved]
  - Rash pruritic [Recovered/Resolved]
  - Hyperkeratosis [Recovered/Resolved]
  - Acanthosis [Recovered/Resolved]
  - Skin lesion [Recovered/Resolved]
